FAERS Safety Report 13614961 (Version 1)
Quarter: 2017Q2

REPORT INFORMATION
  Report Type: Report from Study
  Country: US (occurrence: US)
  Receive Date: 20170606
  Receipt Date: 20170606
  Transmission Date: 20170830
  Serious: Yes (Life-Threatening)
  Sender: FDA-Public Use
  Company Number: US-BION-006357

PATIENT
  Age: 78 Year
  Sex: Male

DRUGS (1)
  1. LOPERAMIDE HYDROCHLORIDE. [Suspect]
     Active Substance: LOPERAMIDE HYDROCHLORIDE

REACTIONS (5)
  - Confusional state [Unknown]
  - Cardiac arrest [Unknown]
  - Electrolyte imbalance [Unknown]
  - Intentional product misuse [Not Recovered/Not Resolved]
  - Ventricular fibrillation [Unknown]
